FAERS Safety Report 8020999-4 (Version None)
Quarter: 2011Q4

REPORT INFORMATION
  Report Type: 
  Country: None (occurrence: None)
  Receive Date: 20111229
  Receipt Date: 20111216
  Transmission Date: 20120403
  Serious: Yes (Hospitalization)
  Sender: FDA-Public Use
  Company Number: 2011CZ0407

PATIENT
  Age: 1 Year
  Sex: Male

DRUGS (1)
  1. ORFADIN [Suspect]
     Indication: TYROSINAEMIA
     Dosage: (TWICE DAILY)
     Dates: start: 20110630

REACTIONS (2)
  - LIVER TRANSPLANT [None]
  - SUCCINYLACETONE INCREASED [None]
